FAERS Safety Report 8844363 (Version 3)
Quarter: 2012Q4

REPORT INFORMATION
  Report Type: 
  Country: US (occurrence: US)
  Receive Date: 20121017
  Receipt Date: 20121126
  Transmission Date: 20130627
  Serious: Yes (Other)
  Sender: FDA-Public Use
  Company Number: US-JNJFOC-20121007697

PATIENT
  Age: 52 Year
  Sex: Male
  Weight: 86.17 kg

DRUGS (6)
  1. MOTRIN [Suspect]
     Indication: NECK PAIN
     Route: 065
     Dates: end: 20120620
  2. MOTRIN [Suspect]
     Indication: MUSCULOSKELETAL PAIN
     Route: 065
     Dates: end: 20120620
  3. MOTRIN [Suspect]
     Indication: PAIN IN EXTREMITY
     Route: 065
     Dates: end: 20120620
  4. DEPO-MEDROL [Suspect]
     Indication: CERVICOBRACHIAL SYNDROME
     Route: 008
     Dates: start: 20120619
  5. DEPO-MEDROL [Suspect]
     Indication: MUSCULOSKELETAL PAIN
     Route: 008
     Dates: start: 20120619
  6. DEPO-MEDROL [Suspect]
     Indication: NECK PAIN
     Route: 008
     Dates: start: 20120619

REACTIONS (1)
  - Cervicobrachial syndrome [Unknown]
